FAERS Safety Report 13473491 (Version 1)
Quarter: 2017Q2

REPORT INFORMATION
  Report Type: Spontaneous
  Country: US (occurrence: US)
  Receive Date: 20170424
  Receipt Date: 20170424
  Transmission Date: 20170830
  Serious: Yes (Other)
  Sender: FDA-Public Use
  Company Number: US-BRACCO-014501

PATIENT
  Age: 68 Year
  Sex: Male

DRUGS (2)
  1. E-Z-PAQUE [Suspect]
     Active Substance: BARIUM SULFATE
     Indication: OESOPHAGRAM
     Route: 048
     Dates: start: 20170316, end: 20170316
  2. E-Z-HD [Suspect]
     Active Substance: BARIUM SULFATE
     Indication: OESOPHAGRAM
     Route: 048
     Dates: start: 20170316, end: 20170316

REACTIONS (7)
  - Hypersensitivity [Recovered/Resolved]
  - Swelling face [None]
  - Mouth swelling [None]
  - Lip blister [None]
  - Lip discolouration [None]
  - Local swelling [None]
  - Dyspnoea [None]

NARRATIVE: CASE EVENT DATE: 20170316
